FAERS Safety Report 23382941 (Version 1)
Quarter: 2024Q1

REPORT INFORMATION
  Report Type: Spontaneous
  Country: US (occurrence: US)
  Receive Date: 20240109
  Receipt Date: 20240109
  Transmission Date: 20240409
  Serious: No
  Sender: FDA-Public Use
  Company Number: US-OPELLA-2024OHG000315

PATIENT

DRUGS (1)
  1. UNISOM SLEEPTABS [Suspect]
     Active Substance: DOXYLAMINE SUCCINATE

REACTIONS (2)
  - Therapeutic response delayed [Unknown]
  - No adverse event [Unknown]
